FAERS Safety Report 4798873-6 (Version None)
Quarter: 2005Q4

REPORT INFORMATION
  Report Type: 
  Country: None (occurrence: None)
  Receive Date: 20051014
  Receipt Date: 20051013
  Transmission Date: 20060501
  Serious: Yes (Hospitalization)
  Sender: FDA-Public Use
  Company Number: FR-GLAXOSMITHKLINE-B0397101A

PATIENT
  Age: 10 Month
  Sex: Female

DRUGS (1)
  1. CLAMOXYL [Suspect]
     Indication: URINARY TRACT INFECTION
     Route: 048
     Dates: start: 20050202, end: 20050211

REACTIONS (2)
  - OEDEMA [None]
  - URTICARIA [None]
